FAERS Safety Report 7426045-5 (Version None)
Quarter: 2011Q2

REPORT INFORMATION
  Report Type: 
  Country: None (occurrence: None)
  Receive Date: 20110420
  Receipt Date: 20110415
  Transmission Date: 20111010
  Serious: Yes (Hospitalization)
  Sender: FDA-Public Use
  Company Number: AT-ROCHE-772004

PATIENT
  Age: 73 Year
  Sex: Female
  Weight: 614.4 kg

DRUGS (17)
  1. LOESFERRON [Concomitant]
     Route: 058
  2. BONIVA [Suspect]
     Indication: OSTEOPOROSIS
     Route: 065
  3. DIOVAN [Concomitant]
  4. MEXALEN [Concomitant]
  5. THEOPHYLLINE [Concomitant]
  6. MAXI-KALZ VIT D3 [Concomitant]
  7. TEMESTA [Concomitant]
  8. PANTOLOC [Concomitant]
  9. PROTELOS [Concomitant]
  10. SAROTEN [Concomitant]
  11. DIOVAN HCT [Concomitant]
  12. CRESTOR [Concomitant]
  13. NOVALGIN [Concomitant]
  14. DILATREND [Concomitant]
  15. SYMBICORT [Concomitant]
     Dosage: 0-1 HUB DAILY
  16. LOESFERRON [Concomitant]
     Route: 058
  17. BERODUAL [Concomitant]

REACTIONS (1)
  - FEMUR FRACTURE [None]
